FAERS Safety Report 15849117 (Version 1)
Quarter: 2019Q1

REPORT INFORMATION
  Report Type: Report from Study
  Country: AT (occurrence: AT)
  Receive Date: 20190121
  Receipt Date: 20190121
  Transmission Date: 20190417
  Serious: Yes (Other)
  Sender: FDA-Public Use
  Company Number: AT-BAYER-2018-214519

PATIENT
  Age: 27 Year
  Sex: Female

DRUGS (1)
  1. MIRENA [Suspect]
     Active Substance: LEVONORGESTREL
     Dosage: UNK
     Dates: start: 20170817, end: 20181116

REACTIONS (3)
  - Irritability [Recovered/Resolved]
  - Aggression [Recovered/Resolved]
  - Premenstrual syndrome [Recovered/Resolved]

NARRATIVE: CASE EVENT DATE: 201712
